FAERS Safety Report 19470414 (Version 6)
Quarter: 2024Q3

REPORT INFORMATION
  Report Type: Spontaneous
  Country: US (occurrence: US)
  Receive Date: 20210628
  Receipt Date: 20240909
  Transmission Date: 20241016
  Serious: Yes (Other)
  Sender: PFIZER
  Company Number: US-PFIZER INC-2021531635

PATIENT
  Age: 63 Year
  Sex: Male

DRUGS (3)
  1. EUCRISA [Suspect]
     Active Substance: CRISABOROLE
     Indication: Psoriasis
     Dosage: UNK UNK, 2X/DAY
     Route: 061
  2. EUCRISA [Suspect]
     Active Substance: CRISABOROLE
     Indication: Psoriasis
     Dosage: UNK UNK, 1X/DAY
     Route: 061
  3. EUCRISA [Suspect]
     Active Substance: CRISABOROLE
     Dosage: UNK, 2X/DAY
     Route: 061

REACTIONS (14)
  - Brain injury [Unknown]
  - Skin mass [Unknown]
  - Skin lesion [Unknown]
  - Haemangioma of skin [Unknown]
  - Seborrhoea [Unknown]
  - Seborrhoeic keratosis [Unknown]
  - Actinic elastosis [Unknown]
  - Benign neoplasm of skin [Unknown]
  - Lentigo [Unknown]
  - Ephelides [Unknown]
  - Melanocytic naevus [Unknown]
  - Frustration tolerance decreased [Unknown]
  - Off label use [Unknown]
  - Drug effective for unapproved indication [Unknown]
